FAERS Safety Report 5756946-5 (Version None)
Quarter: 2008Q2

REPORT INFORMATION
  Report Type: 
  Country: None (occurrence: None)
  Receive Date: 20080529
  Receipt Date: 20080522
  Transmission Date: 20081010
  Serious: Yes (Hospitalization)
  Sender: FDA-Public Use
  Company Number: 2008SP009785

PATIENT
  Age: 53 Year
  Sex: Female
  Weight: 67.586 kg

DRUGS (4)
  1. PEG-INTRON [Suspect]
     Indication: HEPATITIS C
     Dosage: SC
     Route: 058
     Dates: start: 20080215
  2. RIBAVIRIN [Suspect]
     Indication: HEPATITIS C
     Dosage: PO
     Route: 048
     Dates: start: 20080215
  3. LOPRESSOR [Concomitant]
  4. VICODIN [Concomitant]

REACTIONS (16)
  - BLISTER [None]
  - DECREASED APPETITE [None]
  - DEPRESSION [None]
  - DYSGEUSIA [None]
  - EYE SWELLING [None]
  - GASTRIC INFECTION [None]
  - GASTRITIS VIRAL [None]
  - HYPERTENSION [None]
  - HYPOAESTHESIA [None]
  - IMPAIRED HEALING [None]
  - MASS [None]
  - MYALGIA [None]
  - PAIN [None]
  - VIRAL INFECTION [None]
  - WEIGHT DECREASED [None]
  - WHITE BLOOD CELL COUNT DECREASED [None]
